FAERS Safety Report 25440335 (Version 1)
Quarter: 2025Q2

REPORT INFORMATION
  Report Type: Spontaneous
  Country: US (occurrence: None)
  Receive Date: 20250613
  Receipt Date: 20250613
  Transmission Date: 20250716
  Serious: Yes (Hospitalization)
  Sender: FDA-CTU
  Company Number: None

PATIENT
  Age: 48 Year
  Sex: Female

DRUGS (11)
  1. MYCOPHENOLIC ACID [Suspect]
     Active Substance: MYCOPHENOLIC ACID
     Indication: Renal transplant
     Dosage: 360 MG TWICE A DAY ORAL ?
     Route: 048
     Dates: start: 20220616
  2. TACROLIMUS [Suspect]
     Active Substance: TACROLIMUS
     Indication: Renal transplant
     Dosage: 0.5 MG TWICE A DAY ORAL
     Route: 048
     Dates: start: 20220712
  3. ACETAMINOPHEN 500MG TABLETS [Concomitant]
  4. vitamin d3 1,000 unit capsule [Concomitant]
  5. PREDNISONE [Concomitant]
     Active Substance: PREDNISONE
  6. estradiol 0.01% vaginal cream [Concomitant]
  7. hydroxyzine 10 mg tablet [Concomitant]
  8. ELIQUIS [Concomitant]
     Active Substance: APIXABAN
  9. senna 8.6 mg tablet [Concomitant]
  10. labetalol 300 mg tablet [Concomitant]
  11. famotidine 20 mg tablet [Concomitant]

REACTIONS (1)
  - Gout [None]

NARRATIVE: CASE EVENT DATE: 20250612
